FAERS Safety Report 6421814-2 (Version None)
Quarter: 2009Q4

REPORT INFORMATION
  Report Type: 
  Country: None (occurrence: None)
  Receive Date: 20091030
  Receipt Date: 20091021
  Transmission Date: 20100525
  Serious: Yes (Hospitalization)
  Sender: FDA-Public Use
  Company Number: B0596700A

PATIENT
  Age: 6 Month
  Sex: Male

DRUGS (1)
  1. SULTANOL [Suspect]
     Indication: DRUG USE FOR UNKNOWN INDICATION
     Dosage: 100MCG UNKNOWN
     Route: 055

REACTIONS (1)
  - CYANOSIS [None]
